FAERS Safety Report 9235123 (Version 2)
Quarter: 2013Q2

REPORT INFORMATION
  Report Type: Spontaneous
  Country: NL (occurrence: NL)
  Receive Date: 20130416
  Receipt Date: 20130424
  Transmission Date: 20140414
  Serious: Yes (Hospitalization)
  Sender: FDA-Public Use
  Company Number: NL-AMGEN-NLDSP2013025750

PATIENT
  Age: 67 Year
  Sex: Female
  Weight: 44 kg

DRUGS (8)
  1. PEGFILGRASTIM [Suspect]
     Indication: PRODUCT USED FOR UNKNOWN INDICATION
     Dosage: 6 MG, UNK
     Route: 058
     Dates: start: 20100304
  2. RITUXIMAB [Suspect]
     Indication: DIFFUSE LARGE B-CELL LYMPHOMA
     Dosage: 510 MG, UNK
     Route: 042
     Dates: start: 20100303
  3. CYCLOPHOSPHAMIDE [Suspect]
     Indication: DIFFUSE LARGE B-CELL LYMPHOMA
     Dosage: 1020 MG, UNK
     Route: 042
     Dates: start: 20100303
  4. DOXORUBICIN /00330902/ [Suspect]
     Indication: DIFFUSE LARGE B-CELL LYMPHOMA
     Dosage: 60 MG, UNK
     Route: 042
     Dates: start: 20100303
  5. PREDNISONE [Suspect]
     Indication: DIFFUSE LARGE B-CELL LYMPHOMA
     Dosage: 100 MG, UNK
     Route: 048
     Dates: start: 20100303
  6. NEXIUM                             /01479302/ [Concomitant]
     Dosage: UNK
     Route: 048
     Dates: start: 20090219
  7. LANOXIN [Concomitant]
     Dosage: UNK
     Route: 048
     Dates: start: 20090219
  8. EZETROL [Concomitant]
     Indication: HYPERCHOLESTEROLAEMIA
     Dosage: UNK
     Dates: start: 20090219

REACTIONS (1)
  - Neutropenia [Recovered/Resolved]
